FAERS Safety Report 5947011-2 (Version None)
Quarter: 2008Q4

REPORT INFORMATION
  Report Type: 
  Country: None (occurrence: None)
  Receive Date: 20081110
  Receipt Date: 20081031
  Transmission Date: 20090506
  Serious: Yes (Disabling, Other)
  Sender: FDA-Public Use
  Company Number: GB-ASTRAZENECA-2008GB02062

PATIENT
  Age: 42 Year
  Sex: Male
  Weight: 101.6 kg

DRUGS (2)
  1. QUETIAPINE FUMARATE [Suspect]
     Indication: SCHIZOPHRENIA
     Route: 048
     Dates: start: 20081003
  2. FLUPENTIXOL [Concomitant]
     Indication: SCHIZOPHRENIA
     Route: 065
     Dates: start: 20070101

REACTIONS (3)
  - HYPERSOMNIA [None]
  - LOSS OF CONSCIOUSNESS [None]
  - PRURITUS [None]
